FAERS Safety Report 11789353 (Version 1)
Quarter: 2015Q4

REPORT INFORMATION
  Report Type: Spontaneous
  Country: FR (occurrence: FR)
  Receive Date: 20151201
  Receipt Date: 20151201
  Transmission Date: 20160305
  Serious: Yes (Life-Threatening, Hospitalization, Other)
  Sender: FDA-Public Use
  Company Number: FR-ELI_LILLY_AND_COMPANY-FR201511008927

PATIENT
  Age: 0 Day
  Weight: 4.16 kg

DRUGS (8)
  1. ANAFRANIL [Suspect]
     Active Substance: CLOMIPRAMINE HYDROCHLORIDE
     Indication: DEPRESSION
     Dosage: 75 MG, BID
     Route: 064
     Dates: start: 20150526, end: 20151026
  2. SERESTA [Suspect]
     Active Substance: OXAZEPAM
     Dosage: 10 MG, QID
     Route: 064
     Dates: start: 20151019, end: 20151026
  3. PROZAC [Suspect]
     Active Substance: FLUOXETINE HYDROCHLORIDE
     Indication: DEPRESSION
     Dosage: UNK, UNKNOWN
     Route: 064
     Dates: start: 20150624
  4. VALIUM [Suspect]
     Active Substance: DIAZEPAM
     Indication: DEPRESSION
     Dosage: UNK, UNKNOWN
     Route: 064
     Dates: start: 20150624, end: 20151019
  5. TEGELINE [Concomitant]
     Active Substance: HUMAN IMMUNOGLOBULIN G
     Indication: THROMBOCYTOPENIA
     Dosage: 2 COURSES, UNKNOWN
     Route: 064
     Dates: start: 20151013
  6. PREDNISOLONE. [Concomitant]
     Active Substance: PREDNISOLONE
     Indication: THROMBOCYTOPENIA
     Dosage: 1MG/KG/24HOUR
     Route: 064
     Dates: start: 20151013
  7. SEROPLEX [Suspect]
     Active Substance: ESCITALOPRAM OXALATE
     Indication: DEPRESSION
     Dosage: 10 MG, QD
     Route: 064
     Dates: start: 20150526, end: 20150624
  8. SERESTA [Suspect]
     Active Substance: OXAZEPAM
     Indication: DEPRESSION
     Dosage: 10 MG, QID
     Route: 064
     Dates: start: 20150526, end: 20150624

REACTIONS (11)
  - Apnoea neonatal [Recovered/Resolved]
  - Neurological symptom [Recovering/Resolving]
  - Large for dates baby [Unknown]
  - Foetal distress syndrome [Recovered/Resolved]
  - Hypotonia neonatal [Recovered/Resolved]
  - Agitation [Recovering/Resolving]
  - Meconium in amniotic fluid [Recovered/Resolved]
  - Foetal heart rate decreased [Recovered/Resolved]
  - Neonatal respiratory distress syndrome [Recovered/Resolved]
  - Tremor [Recovering/Resolving]
  - Drug withdrawal syndrome [Not Recovered/Not Resolved]

NARRATIVE: CASE EVENT DATE: 20151026
